FAERS Safety Report 8437804 (Version 3)
Quarter: 2015Q1

REPORT INFORMATION
  Report Type: Spontaneous
  Country: US (occurrence: US)
  Receive Date: 20120302
  Receipt Date: 20150304
  Transmission Date: 20150721
  Serious: Yes (Other)
  Sender: FDA-Public Use
  Company Number: US-ROCHE-1044450

PATIENT
  Age: 72 Year
  Sex: Female

DRUGS (2)
  1. BONIVA [Suspect]
     Active Substance: IBANDRONATE SODIUM
     Indication: OSTEOPOROSIS
     Route: 048
     Dates: start: 20050913, end: 201003
  2. FOSAMAX [Suspect]
     Active Substance: ALENDRONATE SODIUM
     Indication: OSTEOPOROSIS
     Route: 048
     Dates: start: 1997, end: 200509

REACTIONS (4)
  - Emotional distress [Unknown]
  - Anxiety [Unknown]
  - Femur fracture [Unknown]
  - Low turnover osteopathy [Unknown]

NARRATIVE: CASE EVENT DATE: 20080808
